FAERS Safety Report 22299141 (Version 1)
Quarter: 2023Q2

REPORT INFORMATION
  Report Type: Spontaneous
  Country: US (occurrence: None)
  Receive Date: 20230508
  Receipt Date: 20230508
  Transmission Date: 20230722
  Serious: No
  Sender: FDA-Public Use
  Company Number: None

PATIENT
  Age: 10 Month
  Sex: Male
  Weight: 7.2 kg

DRUGS (1)
  1. PREDNISONE [Suspect]
     Active Substance: PREDNISONE
     Indication: Croup infectious
     Route: 048
     Dates: start: 20230428, end: 20230430

REACTIONS (1)
  - Vomiting projectile [None]

NARRATIVE: CASE EVENT DATE: 20230428
